FAERS Safety Report 25846652 (Version 2)
Quarter: 2025Q4

REPORT INFORMATION
  Report Type: Spontaneous
  Country: JP (occurrence: JP)
  Receive Date: 20250925
  Receipt Date: 20251108
  Transmission Date: 20260118
  Serious: Yes (Other)
  Sender: ROCHE
  Company Number: JP-CHUGAI-2025030094

PATIENT
  Age: 7 Decade
  Sex: Female

DRUGS (2)
  1. ACTEMRA [Suspect]
     Active Substance: TOCILIZUMAB
     Indication: Rheumatoid arthritis
     Dosage: 162 MG, ONCE EVERY 10 DAYS
     Route: 058
     Dates: start: 200004
  2. METHOTREXATE [Concomitant]
     Active Substance: METHOTREXATE
     Indication: Rheumatoid arthritis
     Dosage: 4 MILLIGRAM
     Route: 065

REACTIONS (1)
  - Bladder cancer [Not Recovered/Not Resolved]
